FAERS Safety Report 6139822-8 (Version None)
Quarter: 2009Q1

REPORT INFORMATION
  Report Type: 
  Country: None (occurrence: None)
  Receive Date: 20090330
  Receipt Date: 20090330
  Transmission Date: 20090719
  Serious: No
  Sender: FDA-Public Use
  Company Number: None

PATIENT
  Sex: Female
  Weight: 184 kg

DRUGS (8)
  1. GLIPIZIDE [Suspect]
     Dosage: 10MG TAB OSM 24 10 MG QD ORAL
     Route: 048
     Dates: start: 20090227, end: 20090330
  2. ALBUTEROL [Concomitant]
  3. ASPIRIN [Concomitant]
  4. CRESTOR [Concomitant]
  5. DOXYCYCLINE [Concomitant]
  6. NEXIUM [Concomitant]
  7. TRICOR [Concomitant]
  8. ZESTRIL [Concomitant]

REACTIONS (1)
  - GASTROINTESTINAL DISORDER [None]
